FAERS Safety Report 19685391 (Version 2)
Quarter: 2021Q3

REPORT INFORMATION
  Report Type: Spontaneous
  Country: US (occurrence: US)
  Receive Date: 20210811
  Receipt Date: 20210920
  Transmission Date: 20211014
  Serious: No
  Sender: FDA-Public Use
  Company Number: US-ASTRAZENECA-2021A617534

PATIENT
  Sex: Male
  Weight: 77.1 kg

DRUGS (2)
  1. METFORMIN [Concomitant]
     Active Substance: METFORMIN HYDROCHLORIDE
     Dosage: 1000.0MG UNKNOWN
     Route: 065
  2. BYDUREON BCISE [Suspect]
     Active Substance: EXENATIDE
     Indication: DIABETES MELLITUS
     Route: 058

REACTIONS (6)
  - Injection site discolouration [Unknown]
  - Device delivery system issue [Unknown]
  - Product use issue [Unknown]
  - Illness [Recovered/Resolved]
  - Blood glucose abnormal [Not Recovered/Not Resolved]
  - Loss of consciousness [Recovered/Resolved]
